FAERS Safety Report 7349262-1 (Version None)
Quarter: 2011Q1

REPORT INFORMATION
  Report Type: 
  Country: None (occurrence: None)
  Receive Date: 20110303
  Receipt Date: 20110222
  Transmission Date: 20110831
  Serious: Yes (Hospitalization)
  Sender: FDA-Public Use
  Company Number: 2010SP056225

PATIENT
  Age: 24 Year
  Sex: Female
  Weight: 54.4316 kg

DRUGS (3)
  1. ZITHROMAX [Concomitant]
  2. IMPLANON [Suspect]
     Indication: CONTRACEPTION
     Dosage: 1 DF;SBDE
     Route: 059
     Dates: start: 20100730
  3. XANAX [Concomitant]

REACTIONS (5)
  - PREGNANCY WITH IMPLANT CONTRACEPTIVE [None]
  - COMPLICATION OF DEVICE REMOVAL [None]
  - ANTEPARTUM HAEMORRHAGE [None]
  - DEVICE FAILURE [None]
  - DRUG EXPOSURE DURING PREGNANCY [None]
